FAERS Safety Report 8020308-0 (Version None)
Quarter: 2012Q1

REPORT INFORMATION
  Report Type: 
  Country: None (occurrence: None)
  Receive Date: 20120103
  Receipt Date: 20111227
  Transmission Date: 20120608
  Serious: Yes (Hospitalization)
  Sender: FDA-Public Use
  Company Number: IT-ROCHE-1023366

PATIENT
  Sex: Male

DRUGS (4)
  1. TORADOL [Suspect]
     Indication: BACK PAIN
     Dosage: 30 MG/ML
     Route: 030
     Dates: start: 20111126, end: 20111128
  2. VOLTAREN [Suspect]
     Indication: BACK PAIN
     Dosage: 75MG/3ML
     Route: 030
     Dates: start: 20111125, end: 20111128
  3. MUSCORIL [Concomitant]
     Indication: BACK PAIN
     Dosage: 4 MG/2ML
     Route: 030
     Dates: start: 20111126, end: 20111128
  4. RAMIPRIL [Concomitant]
     Indication: HYPERTENSION
     Dosage: 2.5 MG + 12.5 MG
     Route: 048
     Dates: start: 20081101, end: 20111127

REACTIONS (2)
  - MELAENA [None]
  - DUODENAL ULCER [None]
